FAERS Safety Report 7904862-2 (Version None)
Quarter: 2011Q4

REPORT INFORMATION
  Report Type: 
  Country: None (occurrence: None)
  Receive Date: 20111109
  Receipt Date: 20111028
  Transmission Date: 20120403
  Serious: Yes (Other)
  Sender: FDA-Public Use
  Company Number: PHHY2009JP33392

PATIENT
  Sex: Female
  Weight: 62 kg

DRUGS (8)
  1. DIOVAN [Concomitant]
     Indication: HYPERTENSION
     Dosage: 80 MG, UNK
     Route: 048
  2. ALINAMIN F [Concomitant]
     Dosage: UNK UKN, UNK
     Route: 048
  3. DOXAZOSIN MESYLATE [Concomitant]
     Indication: HYPERTENSION
     Dosage: 1 MG, UNK
     Route: 048
  4. ALUSA [Concomitant]
     Indication: GASTRIC ULCER
     Dosage: 100 MG, UNK
     Route: 048
  5. DICLOFENAC SODIUM [Suspect]
     Indication: KNEE DEFORMITY
     Dosage: 100 MG, UNK
     Route: 048
     Dates: start: 20030101, end: 20080421
  6. RINLAXER [Concomitant]
     Indication: OSTEOARTHRITIS
     Dosage: 125 MG, UNK
     Route: 048
  7. ALUMINIUM HYDROXIDE W/ MAGNESIUM HYDROXIDE [Concomitant]
     Indication: GASTRIC ULCER
     Dosage: UNK UKN, UNK
     Route: 048
  8. SCOPOLAMINE BUTYLBROMIDE [Concomitant]
     Indication: GASTRIC ULCER
     Dosage: UNK UKN, UNK
     Route: 048

REACTIONS (9)
  - MOUTH ULCERATION [None]
  - WHITE BLOOD CELL COUNT DECREASED [None]
  - RED BLOOD CELL COUNT DECREASED [None]
  - TONGUE ULCERATION [None]
  - IRON DEFICIENCY ANAEMIA [None]
  - HAEMOGLOBIN DECREASED [None]
  - GASTRIC ULCER [None]
  - BLOOD IRON DECREASED [None]
  - SERUM FERRITIN DECREASED [None]
